FAERS Safety Report 7512506-7 (Version None)
Quarter: 2011Q2

REPORT INFORMATION
  Report Type: 
  Country: None (occurrence: None)
  Receive Date: 20110525
  Receipt Date: 20110525
  Transmission Date: 20111010
  Serious: No
  Sender: FDA-Public Use
  Company Number: None

PATIENT

DRUGS (1)
  1. XANAX [Suspect]
     Dosage: 2MG ORAL
     Route: 048

REACTIONS (5)
  - DYSKINESIA [None]
  - SWELLING FACE [None]
  - CHAPPED LIPS [None]
  - PRODUCT SUBSTITUTION ISSUE [None]
  - RASH [None]
